FAERS Safety Report 9169908 (Version 1)
Quarter: 2013Q1

REPORT INFORMATION
  Report Type: Spontaneous
  Country: US (occurrence: None)
  Receive Date: 20130314
  Receipt Date: 20130314
  Transmission Date: 20140127
  Serious: Yes (Hospitalization)
  Sender: FDA-Public Use
  Company Number: None

PATIENT
  Age: 76 Year
  Sex: Female
  Weight: 74 kg

DRUGS (11)
  1. WARFARIN [Suspect]
     Indication: ATRIAL FIBRILLATION
     Dosage: UNKNOWN   DAILY   PO?05/14/2012   --   05/22/2012
     Route: 048
     Dates: start: 20120514, end: 20120522
  2. FUROSEMIDE [Concomitant]
  3. DILTIAZEM CD [Concomitant]
  4. DOXYCYCLINE [Concomitant]
  5. LOSARTAN [Concomitant]
  6. DIGOXIN [Concomitant]
  7. DONEPEZIL [Concomitant]
  8. FLUTICASONE/SALMETEROL [Concomitant]
  9. PREDNISONE [Concomitant]
  10. ALENDRONATE [Concomitant]
  11. KC120 [Concomitant]

REACTIONS (7)
  - Rectal haemorrhage [None]
  - Melaena [None]
  - Haematemesis [None]
  - Nausea [None]
  - Renal failure acute [None]
  - Hypotension [None]
  - Gastric ulcer [None]
